FAERS Safety Report 8042031-9 (Version None)
Quarter: 2012Q1

REPORT INFORMATION
  Report Type: 
  Country: None (occurrence: None)
  Receive Date: 20120112
  Receipt Date: 20111228
  Transmission Date: 20120608
  Serious: Yes (Death)
  Sender: FDA-Public Use
  Company Number: US-UCBSA-048991

PATIENT
  Age: 19 Year
  Sex: Female

DRUGS (8)
  1. ATENOLOL [Suspect]
     Route: 048
  2. DIAZEPAM [Suspect]
     Route: 048
  3. DIPHENHYDRAMINE HCL [Suspect]
     Route: 048
  4. ACETAMINOPHEN AND HYDROCODONE BITARTRATE [Suspect]
     Route: 048
  5. SALICYLATE [Suspect]
     Route: 048
  6. AMLODIPINE [Suspect]
     Route: 048
  7. HYDROXYZINE [Suspect]
     Route: 048
  8. TRIAMTERENE AND HYDROCHLOROTHIAZIDE [Suspect]
     Route: 048

REACTIONS (1)
  - COMPLETED SUICIDE [None]
